FAERS Safety Report 20969405 (Version 2)
Quarter: 2022Q3

REPORT INFORMATION
  Report Type: Spontaneous
  Country: US (occurrence: US)
  Receive Date: 20220616
  Receipt Date: 20220714
  Transmission Date: 20221027
  Serious: Yes (Hospitalization, Other)
  Sender: FDA-Public Use
  Company Number: US-PFIZER INC-PV202200002383

PATIENT
  Age: 59 Year
  Sex: Female

DRUGS (1)
  1. RITUXIMAB [Suspect]
     Active Substance: RITUXIMAB
     Indication: Diffuse large B-cell lymphoma
     Dosage: UNK
     Dates: end: 202111

REACTIONS (9)
  - Pyrexia [Unknown]
  - Dyspnoea [Not Recovered/Not Resolved]
  - Organising pneumonia [Unknown]
  - Respiratory failure [Not Recovered/Not Resolved]
  - Pneumonia bacterial [Unknown]
  - COVID-19 [Not Recovered/Not Resolved]
  - Infection [Unknown]
  - Blood immunoglobulin M decreased [Unknown]
  - Blood immunoglobulin A decreased [Unknown]

NARRATIVE: CASE EVENT DATE: 20220101
